FAERS Safety Report 7407989-7 (Version None)
Quarter: 2011Q2

REPORT INFORMATION
  Report Type: 
  Country: None (occurrence: None)
  Receive Date: 20110412
  Receipt Date: 20110407
  Transmission Date: 20111010
  Serious: Yes (Other)
  Sender: FDA-Public Use
  Company Number: US-TEVA-261883USA

PATIENT
  Sex: Male

DRUGS (3)
  1. MEXILETINE HYDROCHLORIDE [Suspect]
     Indication: LONG QT SYNDROME
     Dates: start: 20100801, end: 20110101
  2. PROPRANOLOL [Concomitant]
  3. MEXILETINE HYDROCHLORIDE [Suspect]
     Indication: ARRHYTHMIA

REACTIONS (12)
  - CONVULSION [None]
  - BALANCE DISORDER [None]
  - DRUG INEFFECTIVE [None]
  - OVERDOSE [None]
  - CARDIAC ARREST [None]
  - PYREXIA [None]
  - TORSADE DE POINTES [None]
  - VENTRICULAR TACHYCARDIA [None]
  - VENTRICULAR FIBRILLATION [None]
  - ARRHYTHMIA [None]
  - SPEECH DISORDER [None]
  - WRONG TECHNIQUE IN DRUG USAGE PROCESS [None]
